FAERS Safety Report 8525414-X (Version None)
Quarter: 2012Q3

REPORT INFORMATION
  Report Type: 
  Country: None (occurrence: None)
  Receive Date: 20120720
  Receipt Date: 20120716
  Transmission Date: 20120928
  Serious: Yes (Life-Threatening, Hospitalization, Congenital Anomaly)
  Sender: FDA-Public Use
  Company Number: PHHY2012TR060490

PATIENT
  Age: 59 Year
  Sex: Female

DRUGS (1)
  1. DICLOFENAC [Suspect]
     Indication: ANALGESIC THERAPY
     Route: 030

REACTIONS (10)
  - RETINAL DEGENERATION [None]
  - RESPIRATORY ARREST [None]
  - VISUAL IMPAIRMENT [None]
  - TONIC CLONIC MOVEMENTS [None]
  - POSTERIOR REVERSIBLE ENCEPHALOPATHY SYNDROME [None]
  - BLOOD PRESSURE INCREASED [None]
  - HAEMOGLOBIN DECREASED [None]
  - BLINDNESS [None]
  - HEADACHE [None]
  - RETINOPATHY HYPERTENSIVE [None]
